FAERS Safety Report 17479410 (Version 8)
Quarter: 2021Q1

REPORT INFORMATION
  Report Type: Report from Study
  Country: CA (occurrence: CA)
  Receive Date: 20200228
  Receipt Date: 20210211
  Transmission Date: 20210419
  Serious: Yes (Other)
  Sender: FDA-Public Use
  Company Number: PHHY2015CA114494

PATIENT
  Age: 28 Year
  Sex: Female

DRUGS (6)
  1. SANDOSTATIN LAR DEPOT [Suspect]
     Active Substance: OCTREOTIDE ACETATE
     Dosage: 40 MG, QMO
     Route: 030
     Dates: start: 20191025
  2. SANDOSTATIN LAR DEPOT [Suspect]
     Active Substance: OCTREOTIDE ACETATE
     Dosage: 40 MG, QMO
     Route: 030
     Dates: start: 20191118
  3. SANDOSTATIN LAR DEPOT [Suspect]
     Active Substance: OCTREOTIDE ACETATE
     Indication: ACROMEGALY
     Dosage: 10 MG, QMO
     Route: 030
     Dates: start: 20150817, end: 20151013
  4. VYVANSE [Concomitant]
     Active Substance: LISDEXAMFETAMINE DIMESYLATE
     Indication: PRODUCT USED FOR UNKNOWN INDICATION
     Dosage: 20 MG, QD
     Route: 048
  5. SANDOSTATIN LAR DEPOT [Suspect]
     Active Substance: OCTREOTIDE ACETATE
     Indication: PITUITARY TUMOUR BENIGN
     Dosage: 20 MG, QMO
     Route: 030
     Dates: start: 20180323
  6. SANDOSTATIN LAR DEPOT [Suspect]
     Active Substance: OCTREOTIDE ACETATE
     Dosage: 30 MG, QMO
     Route: 030

REACTIONS (32)
  - Acne [Not Recovered/Not Resolved]
  - Body temperature increased [Unknown]
  - Nasopharyngitis [Recovering/Resolving]
  - Headache [Recovering/Resolving]
  - Grandiosity [Recovered/Resolved]
  - Fatigue [Recovered/Resolved]
  - Kidney infection [Unknown]
  - Blood growth hormone decreased [Unknown]
  - Pigmentation disorder [Unknown]
  - Injection site bruising [Recovered/Resolved]
  - Oropharyngeal pain [Recovering/Resolving]
  - Movement disorder [Recovered/Resolved]
  - Mania [Recovered/Resolved]
  - Pyrexia [Recovering/Resolving]
  - Illness [Unknown]
  - Nausea [Recovering/Resolving]
  - Myalgia [Recovered/Resolved]
  - Abdominal discomfort [Recovering/Resolving]
  - Dyspnoea [Unknown]
  - Blood pressure decreased [Unknown]
  - Insulin-like growth factor increased [Unknown]
  - Thinking abnormal [Recovered/Resolved]
  - SARS-CoV-2 test positive [Recovered/Resolved]
  - Injection site pain [Recovered/Resolved]
  - Angina pectoris [Unknown]
  - Confusional state [Recovered/Resolved]
  - Pain in extremity [Unknown]
  - Diarrhoea [Recovering/Resolving]
  - Tachyphrenia [Recovered/Resolved]
  - Hypertrichosis [Unknown]
  - Heart rate decreased [Unknown]
  - Dizziness [Recovering/Resolving]

NARRATIVE: CASE EVENT DATE: 20150917
